FAERS Safety Report 15021788 (Version 1)
Quarter: 2018Q2

REPORT INFORMATION
  Report Type: Spontaneous
  Country: US (occurrence: US)
  Receive Date: 20180601
  Receipt Date: 20180601
  Transmission Date: 20180711
  Serious: Yes (Hospitalization)
  Sender: FDA-Public Use
  Company Number: None

PATIENT
  Sex: Female

DRUGS (10)
  1. ACTOS [Concomitant]
     Active Substance: PIOGLITAZONE HYDROCHLORIDE
  2. BENAZEPRIL/HCTZ 20/25 [Concomitant]
  3. AZATHIOPRINE 50MG [Concomitant]
     Active Substance: AZATHIOPRINE
  4. VYTORIN 10/20 [Concomitant]
  5. NEXIUM [Concomitant]
     Active Substance: ESOMEPRAZOLE MAGNESIUM
  6. METFORMIN 500MG [Concomitant]
     Active Substance: METFORMIN HYDROCHLORIDE
  7. CELEBREX [Concomitant]
     Active Substance: CELECOXIB
  8. HYDROXYCHLOROQUINE 200MG [Concomitant]
     Active Substance: HYDROXYCHLOROQUINE
  9. SERTRALINE [Concomitant]
     Active Substance: SERTRALINE HYDROCHLORIDE
  10. HUMIRA [Suspect]
     Active Substance: ADALIMUMAB
     Route: 058
     Dates: start: 20180125

REACTIONS (3)
  - Spinal fusion surgery [None]
  - Fall [None]
  - Rib fracture [None]
